FAERS Safety Report 9999038 (Version 1)
Quarter: 2014Q1

REPORT INFORMATION
  Report Type: Spontaneous
  Country: US (occurrence: None)
  Receive Date: 20140311
  Receipt Date: 20140311
  Transmission Date: 20141002
  Serious: Yes (Other)
  Sender: FDA-Public Use
  Company Number: None

PATIENT
  Age: 8 Year
  Sex: Female
  Weight: 24.49 kg

DRUGS (4)
  1. SINGULAIR [Suspect]
     Indication: ASTHMA
     Dosage: 1 CHEWABLE TABLET QD ORAL
     Route: 048
     Dates: start: 20140303, end: 20140307
  2. SINGULAIR [Suspect]
     Indication: ADJUVANT THERAPY
     Dosage: 1 CHEWABLE TABLET QD ORAL
     Route: 048
     Dates: start: 20140303, end: 20140307
  3. ALBUTEROL [Concomitant]
  4. PREDNISONE [Concomitant]

REACTIONS (11)
  - Pruritus [None]
  - Hallucination, visual [None]
  - Erythema [None]
  - Pain in extremity [None]
  - Oedema peripheral [None]
  - Headache [None]
  - Crying [None]
  - Fear [None]
  - Conversion disorder [None]
  - Paraesthesia [None]
  - Pain [None]
